FAERS Safety Report 23101850 (Version 2)
Quarter: 2023Q4

REPORT INFORMATION
  Report Type: Report from Study
  Country: NL (occurrence: NL)
  Receive Date: 20231025
  Receipt Date: 20231101
  Transmission Date: 20240110
  Serious: Yes (Hospitalization, Other)
  Sender: FDA-Public Use
  Company Number: NL-CELLTRION INC.-2023NL020250

PATIENT

DRUGS (28)
  1. ADALIMUMAB [Suspect]
     Active Substance: ADALIMUMAB\ISOPROPYL ALCOHOL
     Indication: Crohn^s disease
     Dosage: UNK, 1/WEEK
     Route: 058
     Dates: start: 201411
  2. INFLIXIMAB [Suspect]
     Active Substance: INFLIXIMAB
     Indication: Crohn^s disease
     Dosage: Q4WEEKS
     Route: 065
     Dates: start: 2015, end: 2015
  3. INFLIXIMAB [Suspect]
     Active Substance: INFLIXIMAB
     Dosage: 10 MG/KG LAST ADMINSITRATION 2015
     Route: 065
     Dates: start: 201503
  4. INFLIXIMAB [Suspect]
     Active Substance: INFLIXIMAB
     Dosage: UNK
     Route: 065
     Dates: start: 202008
  5. AZATHIOPRINE SODIUM [Suspect]
     Active Substance: AZATHIOPRINE SODIUM
     Indication: Crohn^s disease
     Dosage: UNK
     Route: 065
     Dates: start: 201509
  6. VEDOLIZUMAB [Suspect]
     Active Substance: VEDOLIZUMAB
     Indication: Crohn^s disease
     Dosage: 4 WEEK
     Route: 065
  7. VEDOLIZUMAB [Suspect]
     Active Substance: VEDOLIZUMAB
     Dosage: UNK
     Route: 065
     Dates: start: 201606
  8. VEDOLIZUMAB [Suspect]
     Active Substance: VEDOLIZUMAB
     Dosage: 4 WEEK
     Route: 065
     Dates: start: 201706, end: 201804
  9. VEDOLIZUMAB [Suspect]
     Active Substance: VEDOLIZUMAB
     Dosage: EVERY 6 WEEKS, LAST ADMINISTRATION DATE: 2017
     Route: 065
     Dates: start: 201706
  10. PREDNISOLONE ACETATE [Suspect]
     Active Substance: PREDNISOLONE ACETATE
     Indication: Crohn^s disease
     Dosage: UNK
     Route: 065
     Dates: start: 201604
  11. PREDNISOLONE ACETATE [Suspect]
     Active Substance: PREDNISOLONE ACETATE
     Dosage: UNK
     Route: 065
     Dates: start: 201909
  12. PREDNISOLONE ACETATE [Suspect]
     Active Substance: PREDNISOLONE ACETATE
     Dosage: 40 MG
     Route: 065
     Dates: start: 201509
  13. PREDNISOLONE ACETATE [Suspect]
     Active Substance: PREDNISOLONE ACETATE
     Dosage: 20 MG
     Route: 065
     Dates: start: 201709
  14. PREDNISOLONE ACETATE [Suspect]
     Active Substance: PREDNISOLONE ACETATE
     Dosage: UNK
     Route: 054
     Dates: start: 201709, end: 201709
  15. PREDNISOLONE ACETATE [Suspect]
     Active Substance: PREDNISOLONE ACETATE
     Dosage: 40 MG, 1/WEEK
     Route: 065
     Dates: start: 201411
  16. PREDNISOLONE ACETATE [Suspect]
     Active Substance: PREDNISOLONE ACETATE
     Dosage: LAST ADMINISTRATION DATE: 2017
     Route: 065
     Dates: start: 201706
  17. PREDNISOLONE ACETATE [Suspect]
     Active Substance: PREDNISOLONE ACETATE
     Dosage: LAST ADMINISTRATION DATE: 2019
     Route: 065
     Dates: start: 201901
  18. USTEKINUMAB [Suspect]
     Active Substance: USTEKINUMAB
     Indication: Crohn^s disease
     Dosage: WEEK 8
     Route: 065
  19. USTEKINUMAB [Suspect]
     Active Substance: USTEKINUMAB
     Dosage: UNK
     Route: 065
     Dates: start: 201804
  20. BECLOMETHASONE DIPROPIONATE [Suspect]
     Active Substance: BECLOMETHASONE DIPROPIONATE
     Indication: Crohn^s disease
     Dosage: UNK
     Route: 065
     Dates: start: 201509
  21. MERCAPTOPURINE [Suspect]
     Active Substance: MERCAPTOPURINE
     Indication: Crohn^s disease
     Dosage: UNK
     Route: 065
     Dates: start: 201604
  22. THIOGUANINE ANHYDROUS [Suspect]
     Active Substance: THIOGUANINE ANHYDROUS
     Indication: Crohn^s disease
     Dosage: UNK
     Route: 065
     Dates: start: 201909
  23. STELARA [Suspect]
     Active Substance: USTEKINUMAB
     Indication: Crohn^s disease
     Dosage: LAST ADMINISTRATION 2019
     Route: 042
     Dates: start: 201903
  24. STELARA [Suspect]
     Active Substance: USTEKINUMAB
     Dosage: UNK
     Route: 065
     Dates: start: 201811
  25. STELARA [Suspect]
     Active Substance: USTEKINUMAB
     Dosage: UNK
     Route: 058
     Dates: start: 201904
  26. METHOTREXATE SODIUM [Suspect]
     Active Substance: METHOTREXATE SODIUM
     Indication: Crohn^s disease
     Dosage: UNK
     Route: 065
     Dates: start: 202008
  27. ADALIMUMAB [Suspect]
     Active Substance: ADALIMUMAB\ISOPROPYL ALCOHOL
     Indication: Crohn^s disease
     Dosage: 1/WEEK
     Route: 058
     Dates: start: 201909, end: 201909
  28. ADALIMUMAB [Suspect]
     Active Substance: ADALIMUMAB\ISOPROPYL ALCOHOL
     Dosage: 1/WEEK
     Route: 058
     Dates: start: 201910, end: 202007

REACTIONS (14)
  - Colitis [Unknown]
  - Crohn^s disease [Not Recovered/Not Resolved]
  - Enteritis [Unknown]
  - Appendicectomy [Unknown]
  - Hospitalisation [Unknown]
  - Pancreatitis [Unknown]
  - Faecal calprotectin increased [Recovering/Resolving]
  - Frequent bowel movements [Not Recovered/Not Resolved]
  - Adverse drug reaction [Unknown]
  - Inflammation [Unknown]
  - Fatigue [Not Recovered/Not Resolved]
  - Therapeutic product effect decreased [Not Recovered/Not Resolved]
  - Therapeutic product effect decreased [Not Recovered/Not Resolved]
  - Therapeutic product effect decreased [Not Recovered/Not Resolved]

NARRATIVE: CASE EVENT DATE: 20141101
